FAERS Safety Report 24987019 (Version 2)
Quarter: 2025Q1

REPORT INFORMATION
  Report Type: Spontaneous
  Country: US (occurrence: US)
  Receive Date: 20250219
  Receipt Date: 20250306
  Transmission Date: 20250409
  Serious: Yes (Other)
  Sender: CALLIDITAS THERAPEUTICS AB
  Company Number: US-Calliditas-2025CAL00368

PATIENT
  Age: 63 Year
  Sex: Male

DRUGS (7)
  1. ALLOPURINOL [Concomitant]
     Active Substance: ALLOPURINOL
  2. NORVASC [Concomitant]
     Active Substance: AMLODIPINE BESYLATE
  3. LISINOPRIL [Concomitant]
     Active Substance: LISINOPRIL
  4. TARPEYO [Suspect]
     Active Substance: BUDESONIDE
     Indication: IgA nephropathy
     Route: 048
     Dates: start: 20240516, end: 20250223
  5. SINGULAIR [Concomitant]
     Active Substance: MONTELUKAST SODIUM
  6. LOVAZA [Concomitant]
     Active Substance: OMEGA-3-ACID ETHYL ESTERS
  7. CRESTOR [Concomitant]
     Active Substance: ROSUVASTATIN CALCIUM

REACTIONS (10)
  - Weight increased [Not Recovered/Not Resolved]
  - Swelling [Recovering/Resolving]
  - Contusion [Recovering/Resolving]
  - Hypertension [Recovering/Resolving]
  - Drug ineffective [Not Recovered/Not Resolved]
  - Muscle fatigue [Recovering/Resolving]
  - Headache [Recovering/Resolving]
  - Fatigue [Recovering/Resolving]
  - Lower respiratory tract infection [Recovered/Resolved]
  - Influenza [Not Recovered/Not Resolved]

NARRATIVE: CASE EVENT DATE: 20240601
